FAERS Safety Report 9616623 (Version 1)
Quarter: 2013Q4

REPORT INFORMATION
  Report Type: Spontaneous
  Country: US (occurrence: US)
  Receive Date: 20131011
  Receipt Date: 20131011
  Transmission Date: 20140711
  Serious: No
  Sender: FDA-Public Use
  Company Number: US-BAYER-2013-123001

PATIENT
  Age: 66 Year
  Sex: Female
  Weight: 120.18 kg

DRUGS (2)
  1. ALEVE GELCAPS [Suspect]
     Indication: ARTHRITIS
     Dosage: 1 DF, BID
     Route: 048
     Dates: start: 2008
  2. BAYER CHEWABLE LOW DOSE BABY ASPIRIN TABLET CHERRY [Concomitant]

REACTIONS (3)
  - Local swelling [Not Recovered/Not Resolved]
  - Weight increased [Not Recovered/Not Resolved]
  - Incorrect drug administration duration [None]
